FAERS Safety Report 10574446 (Version 1)
Quarter: 2014Q4

REPORT INFORMATION
  Report Type: Spontaneous
  Country: US (occurrence: US)
  Receive Date: 20141110
  Receipt Date: 20141110
  Transmission Date: 20150529
  Serious: Yes (Hospitalization)
  Sender: FDA-Public Use
  Company Number: US-BAYER-2014-161803

PATIENT
  Age: 59 Year
  Sex: Male

DRUGS (5)
  1. COREG [Suspect]
     Active Substance: CARVEDILOL
     Indication: BLOOD PRESSURE
     Dosage: 12.5 MG, BID
  2. LASIX [Suspect]
     Active Substance: FUROSEMIDE
     Dosage: 20 MG, QD
  3. ALTACE [Suspect]
     Active Substance: RAMIPRIL
     Indication: HYPERTENSION
     Dosage: 2.5 MG, QD
  4. HYTRIN [Suspect]
     Active Substance: TERAZOSIN HYDROCHLORIDE
     Indication: PROSTATIC DISORDER
     Dosage: 10 MG, HS
  5. LEVITRA [Suspect]
     Active Substance: VARDENAFIL HYDROCHLORIDE TRIHYDRATE
     Indication: ERECTILE DYSFUNCTION
     Dosage: 10 MG, 1/2 TO 1 TABLET ORALLY ^MAYBE ONCE PER MONTH^
     Route: 048
     Dates: start: 2010, end: 20120618

REACTIONS (11)
  - Cerebrovascular accident [Recovering/Resolving]
  - Blindness unilateral [Recovered/Resolved]
  - Hearing impaired [Recovering/Resolving]
  - Vision blurred [Recovered/Resolved]
  - Activities of daily living impaired [Unknown]
  - Visual impairment [Recovered/Resolved]
  - Speech disorder [Recovering/Resolving]
  - Feeling abnormal [Recovering/Resolving]
  - Activities of daily living impaired [Recovering/Resolving]
  - Vision blurred [Recovered/Resolved]
  - Visual impairment [Recovered/Resolved]

NARRATIVE: CASE EVENT DATE: 20120618
